FAERS Safety Report 10768731 (Version 1)
Quarter: 2015Q1

REPORT INFORMATION
  Report Type: Spontaneous
  Country: US (occurrence: US)
  Receive Date: 20150206
  Receipt Date: 20150206
  Transmission Date: 20150721
  Serious: No
  Sender: FDA-Public Use
  Company Number: US-PFIZER INC-2015046472

PATIENT
  Age: 76 Year
  Sex: Male
  Weight: 66 kg

DRUGS (1)
  1. ADVIL [Suspect]
     Active Substance: IBUPROFEN
     Dosage: 200 MG, 3 DF ABOUT 5 HOURS APART
     Route: 048

REACTIONS (2)
  - Abdominal pain lower [Unknown]
  - Blood urine present [Unknown]
